FAERS Safety Report 11143721 (Version 1)
Quarter: 2015Q2

REPORT INFORMATION
  Report Type: Spontaneous
  Country: US (occurrence: None)
  Receive Date: 20150527
  Receipt Date: 20150527
  Transmission Date: 20150821
  Serious: Yes (Hospitalization)
  Sender: FDA-Public Use
  Company Number: None

PATIENT
  Age: 80 Year
  Sex: Male
  Weight: 74.2 kg

DRUGS (2)
  1. LEUPROLIDE ACETATE. [Suspect]
     Active Substance: LEUPROLIDE ACETATE
     Dates: end: 20120711
  2. CASODEX [Suspect]
     Active Substance: BICALUTAMIDE
     Dates: end: 20130109

REACTIONS (3)
  - Stress fracture [None]
  - Radiation injury [None]
  - Osteoarthritis [None]

NARRATIVE: CASE EVENT DATE: 20150313
